FAERS Safety Report 9380178 (Version 1)
Quarter: 2013Q3

REPORT INFORMATION
  Report Type: Spontaneous
  Country: JP (occurrence: JP)
  Receive Date: 20130702
  Receipt Date: 20130702
  Transmission Date: 20140515
  Serious: Yes (Other)
  Sender: FDA-Public Use
  Company Number: PHHY2013JP068295

PATIENT
  Age: 71 Year
  Sex: Female

DRUGS (2)
  1. ZOLEDRONATE [Suspect]
     Indication: METASTASES TO BONE
     Dosage: UNK
  2. PAMIDRONATE [Suspect]
     Indication: METASTASES TO BONE
     Dosage: UNK

REACTIONS (3)
  - Osteonecrosis of jaw [Unknown]
  - Haemorrhage [Unknown]
  - Exposed bone in jaw [Unknown]
